FAERS Safety Report 7727294-9 (Version None)
Quarter: 2011Q3

REPORT INFORMATION
  Report Type: 
  Country: None (occurrence: None)
  Receive Date: 20110831
  Receipt Date: 20110816
  Transmission Date: 20111222
  Serious: Yes (Other)
  Sender: FDA-Public Use
  Company Number: 2011MA012001

PATIENT
  Age: 82 Year
  Sex: Female

DRUGS (4)
  1. DONEPEZIL HYDROCHLORIDE [Suspect]
     Indication: AMNESIA
     Dosage: 10 MG;QD
     Dates: start: 20080801, end: 20080801
  2. DONEPEZIL HYDROCHLORIDE [Suspect]
     Indication: COGNITIVE DISORDER
     Dosage: 10 MG;QD
     Dates: start: 20080801, end: 20080801
  3. SALMETEROL [Concomitant]
  4. FLUTICASONE PROPIONATE [Concomitant]

REACTIONS (6)
  - HYPOXIA [None]
  - CHEST DISCOMFORT [None]
  - PEAK EXPIRATORY FLOW RATE DECREASED [None]
  - WHEEZING [None]
  - DYSPNOEA [None]
  - SPUTUM ABNORMAL [None]
